FAERS Safety Report 8328826-2 (Version None)
Quarter: 2012Q2

REPORT INFORMATION
  Report Type: 
  Country: None (occurrence: None)
  Receive Date: 20120430
  Receipt Date: 20120416
  Transmission Date: 20120825
  Serious: Yes (Hospitalization, Other)
  Sender: FDA-Public Use
  Company Number: SAN_00070_2012

PATIENT
  Age: 55 Year
  Sex: Male

DRUGS (1)
  1. METFORMIN HCL [Suspect]
     Indication: DIABETES MELLITUS
     Dosage: (850 MG QID)

REACTIONS (16)
  - BLINDNESS TRANSIENT [None]
  - LACTIC ACIDOSIS [None]
  - HYPOTHERMIA [None]
  - HYPOGLYCAEMIA [None]
  - METABOLIC ACIDOSIS [None]
  - OVERDOSE [None]
  - BODY TEMPERATURE DECREASED [None]
  - LETHARGY [None]
  - DIALYSIS [None]
  - BLINDNESS [None]
  - VISUAL ACUITY REDUCED [None]
  - DEMYELINATION [None]
  - HAEMODIALYSIS [None]
  - ELECTROLYTE IMBALANCE [None]
  - ABDOMINAL PAIN [None]
  - PUPIL FIXED [None]
